FAERS Safety Report 9289003 (Version 1)
Quarter: 2013Q2

REPORT INFORMATION
  Report Type: Spontaneous
  Country: US (occurrence: US)
  Receive Date: 20130514
  Receipt Date: 20130514
  Transmission Date: 20140414
  Serious: No
  Sender: FDA-Public Use
  Company Number: US-OPTIMER PHARMACEUTICALS, INC.-20120026

PATIENT
  Sex: 0

DRUGS (6)
  1. DIFICID [Suspect]
     Indication: CLOSTRIDIUM DIFFICILE COLITIS
     Dosage: 200 MG, BID
     Route: 048
     Dates: start: 201201, end: 201202
  2. DULCOLAX STOOL SOFTENER [Concomitant]
     Indication: CONSTIPATION
     Dosage: UNK
     Dates: start: 201202, end: 201202
  3. CYMBALTA [Concomitant]
     Indication: DEPRESSION
  4. KLONOPIN [Concomitant]
     Indication: SLEEP DISORDER
  5. CHLORAL HYDRATE [Concomitant]
     Indication: SLEEP DISORDER
  6. SUBOXONE [Concomitant]
     Indication: DEPRESSION

REACTIONS (4)
  - Clostridial infection [Unknown]
  - Disease recurrence [Unknown]
  - Diarrhoea [Unknown]
  - Constipation [Recovered/Resolved]
